FAERS Safety Report 5889037-3 (Version None)
Quarter: 2008Q3

REPORT INFORMATION
  Report Type: 
  Country: None (occurrence: None)
  Receive Date: 20080919
  Receipt Date: 20080304
  Transmission Date: 20090109
  Serious: No
  Sender: FDA-Public Use
  Company Number: US-KINGPHARMUSA00001-K200800280

PATIENT

DRUGS (2)
  1. SONATA [Suspect]
     Indication: INSOMNIA
     Dosage: UNK, PRN
     Route: 048
     Dates: start: 20080201, end: 20080201
  2. XANAX [Concomitant]
     Indication: DRUG USE FOR UNKNOWN INDICATION
     Dosage: UNK, SINGLE, 4 HOURS PRIOR TO SONATA
     Route: 048
     Dates: start: 20080201, end: 20080201

REACTIONS (1)
  - DRUG INEFFECTIVE [None]
